FAERS Safety Report 7225317-7 (Version None)
Quarter: 2011Q1

REPORT INFORMATION
  Report Type: 
  Country: None (occurrence: None)
  Receive Date: 20110113
  Receipt Date: 20110106
  Transmission Date: 20110831
  Serious: Yes (Other)
  Sender: FDA-Public Use
  Company Number: US-PFIZER INC-2011004720

PATIENT
  Age: 76 Year
  Sex: Female
  Weight: 74.83 kg

DRUGS (5)
  1. ACTOS [Concomitant]
  2. DIOVAN HCT [Concomitant]
  3. ROBITUSSIN COUGH AND CHEST CONGESTION DM MAX [Suspect]
     Indication: NASOPHARYNGITIS
     Dosage: 2 TEASPOONS EVERY FOUR HOURS
     Route: 048
     Dates: start: 20101231, end: 20110106
  4. LIPITOR [Concomitant]
  5. SYNTHROID [Concomitant]

REACTIONS (2)
  - AGEUSIA [None]
  - ANOSMIA [None]
